FAERS Safety Report 7580333-0 (Version None)
Quarter: 2011Q2

REPORT INFORMATION
  Report Type: 
  Country: None (occurrence: None)
  Receive Date: 20110629
  Receipt Date: 20110616
  Transmission Date: 20111010
  Serious: Yes (Hospitalization)
  Sender: FDA-Public Use
  Company Number: DE-ROCHE-779409

PATIENT
  Sex: Male
  Weight: 62 kg

DRUGS (6)
  1. METFORMIN HCL [Concomitant]
     Indication: DIABETES MELLITUS
     Dates: start: 20050101, end: 20110614
  2. CAPECITABINE [Concomitant]
     Indication: RECTAL CANCER
     Dosage: CYCLE 1 TILL 4
     Route: 048
     Dates: start: 20110111, end: 20110315
  3. CAPECITABINE [Concomitant]
     Dosage: CYCLE 5 AND 6
     Route: 048
     Dates: start: 20110405, end: 20110426
  4. BEVACIZUMAB [Suspect]
     Indication: RECTAL CANCER
     Route: 042
     Dates: start: 20110111, end: 20110426
  5. FENTANYL-100 [Concomitant]
  6. SITAGLIPTIN [Concomitant]
     Indication: DIABETES MELLITUS
     Dates: start: 20050101, end: 20110614

REACTIONS (5)
  - TRANSIENT ISCHAEMIC ATTACK [None]
  - MITRAL VALVE INCOMPETENCE [None]
  - PNEUMONIA [None]
  - DEHYDRATION [None]
  - HYPERTENSIVE CRISIS [None]
